FAERS Safety Report 20638147 (Version 3)
Quarter: 2023Q2

REPORT INFORMATION
  Report Type: Spontaneous
  Country: IN (occurrence: IN)
  Receive Date: 20220325
  Receipt Date: 20230531
  Transmission Date: 20230722
  Serious: Yes (Hospitalization, Other)
  Sender: FDA-Public Use
  Company Number: IN-PFIZER INC-2020094525

PATIENT
  Age: 55 Year
  Sex: Female

DRUGS (10)
  1. PALBOCICLIB [Suspect]
     Active Substance: PALBOCICLIB
     Indication: Breast cancer metastatic
     Dosage: 125 MG, 1X/DAY
     Route: 048
     Dates: start: 20200215
  2. PALBOCICLIB [Suspect]
     Active Substance: PALBOCICLIB
     Dosage: 125 MG, CYCLIC (1X/DAY, 3 WEEKS /4 WEEKS X 3 MONTHS)
     Route: 048
     Dates: start: 20210708, end: 202303
  3. ANASTROZOLE [Concomitant]
     Active Substance: ANASTROZOLE
     Dosage: 1 MG, 1X/DAY
     Dates: start: 201908
  4. FULVESTRANT [Concomitant]
     Active Substance: FULVESTRANT
     Dosage: 500 MG
     Route: 030
  5. LETROZOLE [Concomitant]
     Active Substance: LETROZOLE
     Dosage: 2.5 MG, DAILY
     Dates: start: 201812, end: 201908
  6. IBANDRONATE SODIUM [Concomitant]
     Active Substance: IBANDRONATE SODIUM
     Dosage: 150 MG, MONTHLY
  7. GLIMEPIRIDE\METFORMIN [Concomitant]
     Active Substance: GLIMEPIRIDE\METFORMIN
     Dosage: UNK, 2X/DAY ((500/2MG) TWICE DAILY)
  8. ATENOLOL [Concomitant]
     Active Substance: ATENOLOL
     Dosage: 50 MG, 1X/DAY
  9. TELMISARTAN [Concomitant]
     Active Substance: TELMISARTAN
     Dosage: 40 MG, 1X/DAY
  10. LEVOTHYROXINE [Concomitant]
     Active Substance: LEVOTHYROXINE
     Dosage: 50 MG, 1X/DAY ( IN THE MORNING ON AN EMPTY STOMACH)

REACTIONS (21)
  - Renal impairment [Unknown]
  - Pneumonia [Unknown]
  - Peripheral swelling [Unknown]
  - Pain [Unknown]
  - Neoplasm progression [Unknown]
  - Full blood count abnormal [Unknown]
  - Red cell distribution width increased [Unknown]
  - White blood cell count decreased [Unknown]
  - Haemoglobin decreased [Unknown]
  - Haematocrit decreased [Unknown]
  - Aspartate aminotransferase increased [Unknown]
  - Blood bicarbonate decreased [Unknown]
  - Red blood cell count decreased [Unknown]
  - Glycosylated haemoglobin increased [Unknown]
  - Blood potassium increased [Unknown]
  - Blood uric acid increased [Unknown]
  - Platelet count decreased [Unknown]
  - Lymphadenopathy [Unknown]
  - Pathological fracture [Unknown]
  - Heart rate increased [Unknown]
  - Off label use [Unknown]

NARRATIVE: CASE EVENT DATE: 20220117
